FAERS Safety Report 20821040 (Version 1)
Quarter: 2022Q2

REPORT INFORMATION
  Report Type: Spontaneous
  Country: US (occurrence: None)
  Receive Date: 20220512
  Receipt Date: 20220512
  Transmission Date: 20220721
  Serious: Yes (Other)
  Sender: FDA-Public Use
  Company Number: None

PATIENT
  Age: 55 Year
  Sex: Female
  Weight: 72 kg

DRUGS (7)
  1. CAPLYTA [Suspect]
     Active Substance: LUMATEPERONE
     Indication: Depression
     Dosage: OTHER QUANTITY : 1 CAPSULE(S);?FREQUENCY : AT BEDTIME;?
     Route: 048
     Dates: start: 20220504, end: 20220508
  2. CAPLYTA [Suspect]
     Active Substance: LUMATEPERONE
     Indication: Bipolar disorder
  3. ARMOUR THYROID [Concomitant]
     Active Substance: THYROID, PORCINE
  4. LAMICTAL [Concomitant]
     Active Substance: LAMOTRIGINE
  5. BIOTIN [Concomitant]
     Active Substance: BIOTIN
  6. Daily vitamin [Concomitant]
  7. PROBIOTICS NOS [Concomitant]
     Active Substance: PROBIOTICS NOS

REACTIONS (3)
  - Loss of consciousness [None]
  - Head injury [None]
  - Dizziness [None]

NARRATIVE: CASE EVENT DATE: 20220506
